FAERS Safety Report 10069650 (Version 1)
Quarter: 2014Q2

REPORT INFORMATION
  Report Type: Spontaneous
  Country: US (occurrence: US)
  Receive Date: 20140410
  Receipt Date: 20140410
  Transmission Date: 20141212
  Serious: Yes (Other)
  Sender: FDA-Public Use
  Company Number: US-AMGEN INC.-USASP2014024824

PATIENT
  Age: 32 Year
  Sex: Male

DRUGS (1)
  1. ENBREL [Suspect]
     Indication: ANKYLOSING SPONDYLITIS
     Dosage: 50 MG, UNK
     Route: 065
     Dates: start: 20070802, end: 2011

REACTIONS (4)
  - Breast mass [Not Recovered/Not Resolved]
  - Pain [Not Recovered/Not Resolved]
  - Nipple disorder [Not Recovered/Not Resolved]
  - Lymphoma [Unknown]
